FAERS Safety Report 17190955 (Version 4)
Quarter: 2020Q1

REPORT INFORMATION
  Report Type: Spontaneous
  Country: US (occurrence: US)
  Receive Date: 20191223
  Receipt Date: 20200115
  Transmission Date: 20200409
  Serious: Yes (Hospitalization, Other)
  Sender: FDA-Public Use
  Company Number: US-PFIZER INC-2019522048

PATIENT
  Sex: Female
  Weight: 120 kg

DRUGS (6)
  1. SKLICE [Suspect]
     Active Substance: IVERMECTIN
     Indication: ULCER
     Dosage: UNK
     Dates: start: 20010209
  2. DIPHENHYDRAMINE HCL [Suspect]
     Active Substance: DIPHENHYDRAMINE HYDROCHLORIDE
     Indication: HORMONE REPLACEMENT THERAPY
     Dosage: 1 MG, 3X/DAY (4 DAY)
     Dates: start: 20190813
  3. TYRAMINE [Suspect]
     Active Substance: TYRAMINE
     Dosage: UNK
     Dates: start: 20190813
  4. SKLICE [Suspect]
     Active Substance: IVERMECTIN
     Dosage: 150 MG, 3X/DAY
     Dates: start: 20190813
  5. DIPHENHYDRAMINE HCL [Suspect]
     Active Substance: DIPHENHYDRAMINE HYDROCHLORIDE
     Indication: PAIN
     Dosage: UNK
     Dates: start: 19870421
  6. TYRAMINE [Suspect]
     Active Substance: TYRAMINE
     Indication: HIV INFECTION
     Dosage: UNK
     Dates: start: 20010102

REACTIONS (3)
  - Suicide attempt [Not Recovered/Not Resolved]
  - Product use issue [Unknown]
  - Depression [Recovered/Resolved]

NARRATIVE: CASE EVENT DATE: 19870421
